FAERS Safety Report 6443836-8 (Version None)
Quarter: 2009Q4

REPORT INFORMATION
  Report Type: 
  Country: None (occurrence: None)
  Receive Date: 20091113
  Receipt Date: 20091109
  Transmission Date: 20100525
  Serious: Yes (Life-Threatening)
  Sender: FDA-Public Use
  Company Number: 2009TJ0176FU2

PATIENT
  Age: 28 Year
  Sex: Female

DRUGS (1)
  1. TWINJECT 0.3 [Suspect]
     Indication: HYPERSENSITIVITY
     Dosage: 0.3MG, AS NEEDED
     Dates: end: 20090701

REACTIONS (2)
  - DEVICE FAILURE [None]
  - EXPIRED DRUG ADMINISTERED [None]
